FAERS Safety Report 25869463 (Version 1)
Quarter: 2025Q3

REPORT INFORMATION
  Report Type: Spontaneous
  Country: US (occurrence: None)
  Receive Date: 20250930
  Receipt Date: 20250930
  Transmission Date: 20251020
  Serious: No
  Sender: FDA-CTU
  Company Number: None

PATIENT
  Age: 22 Year
  Sex: Female
  Weight: 48.15 kg

DRUGS (5)
  1. EFFEXOR XR [Suspect]
     Active Substance: VENLAFAXINE HYDROCHLORIDE
     Indication: Anxiety
     Route: 048
     Dates: start: 20211101
  2. EFFEXOR XR [Suspect]
     Active Substance: VENLAFAXINE HYDROCHLORIDE
     Indication: Depression
  3. VYVANSE [Concomitant]
     Active Substance: LISDEXAMFETAMINE DIMESYLATE
  4. Trazedone 50mg [Concomitant]
  5. Lyletta IUD [Concomitant]

REACTIONS (5)
  - Night sweats [None]
  - Orthostatic hypotension [None]
  - Yawning [None]
  - Bladder spasm [None]
  - Dyspnoea [None]
